FAERS Safety Report 7130934-9 (Version None)
Quarter: 2010Q4

REPORT INFORMATION
  Report Type: 
  Country: None (occurrence: None)
  Receive Date: 20101201
  Receipt Date: 20101119
  Transmission Date: 20110411
  Serious: Yes (Congenital Anomaly)
  Sender: FDA-Public Use
  Company Number: A0684459A

PATIENT
  Sex: Female

DRUGS (6)
  1. PAROXETINE HYDROCHLORIDE [Suspect]
     Indication: ANXIETY
     Dosage: 20MG PER DAY
     Dates: start: 20050201, end: 20060601
  2. PAROXETINE [Suspect]
     Indication: DEPRESSION
  3. FLUCONAZOLE [Concomitant]
     Dates: start: 20050915
  4. PRENATAL VITAMINS [Concomitant]
  5. METRONIDAZOLE [Concomitant]
     Dates: start: 20060112
  6. FEXOFENADINE HCL [Concomitant]
     Dates: start: 20051206

REACTIONS (8)
  - CONGENITAL CARDIOVASCULAR ANOMALY [None]
  - DRUG EXPOSURE DURING PREGNANCY [None]
  - FALLOT'S TETRALOGY [None]
  - MATERNAL DRUGS AFFECTING FOETUS [None]
  - MULTIPLE CONGENITAL ABNORMALITIES [None]
  - PAIN [None]
  - POLYDACTYLY [None]
  - VENTRICULAR SEPTAL DEFECT [None]
